FAERS Safety Report 15774962 (Version 1)
Quarter: 2018Q4

REPORT INFORMATION
  Report Type: Spontaneous
  Country: US (occurrence: US)
  Receive Date: 20181230
  Receipt Date: 20181230
  Transmission Date: 20190205
  Serious: No
  Sender: FDA-Public Use
  Company Number: US-DRREDDYS-USA/USA/18/0104615

PATIENT
  Age: 64 Year
  Sex: Female
  Weight: 62.72 kg

DRUGS (1)
  1. NICOTINE. [Suspect]
     Active Substance: NICOTINE
     Indication: SMOKING CESSATION THERAPY
     Route: 062

REACTIONS (4)
  - Fatigue [Unknown]
  - Skin wrinkling [Unknown]
  - Insomnia [Unknown]
  - Nicotine dependence [Unknown]
